FAERS Safety Report 8007448-7 (Version None)
Quarter: 2011Q4

REPORT INFORMATION
  Report Type: 
  Country: None (occurrence: None)
  Receive Date: 20111123
  Receipt Date: 20110926
  Transmission Date: 20120403
  Serious: No
  Sender: FDA-Public Use
  Company Number: 336672

PATIENT
  Age: 60 Year
  Sex: Female
  Weight: 117 kg

DRUGS (4)
  1. CLONOPIN [Concomitant]
  2. SYNTHROID [Concomitant]
  3. VICTOZA [Suspect]
     Indication: TYPE 2 DIABETES MELLITUS
     Dosage: 0.6 MG, QD,SUBCUTANEOUS; 1.2 MG,QD,SUBCUTANEOUS
     Route: 058
     Dates: start: 20100301
  4. ZANTAC [Concomitant]

REACTIONS (6)
  - VOMITING [None]
  - WEIGHT DECREASED [None]
  - DECREASED APPETITE [None]
  - FEELING ABNORMAL [None]
  - NAUSEA [None]
  - HEADACHE [None]
